FAERS Safety Report 7270562-8 (Version None)
Quarter: 2011Q1

REPORT INFORMATION
  Report Type: 
  Country: None (occurrence: None)
  Receive Date: 20110202
  Receipt Date: 20110119
  Transmission Date: 20110831
  Serious: Yes (Other)
  Sender: FDA-Public Use
  Company Number: AU-GENENTECH-312859

PATIENT
  Sex: Female

DRUGS (2)
  1. LUCENTIS [Suspect]
     Dosage: 0.05 ML, UNK
     Route: 031
     Dates: start: 20110110
  2. LUCENTIS [Suspect]
     Indication: MACULAR DEGENERATION
     Dosage: 0.05 ML, UNK
     Route: 031
     Dates: start: 20101101

REACTIONS (8)
  - DIZZINESS [None]
  - SHOCK [None]
  - FALL [None]
  - NAUSEA [None]
  - LOSS OF CONSCIOUSNESS [None]
  - EYE PAIN [None]
  - BACK INJURY [None]
  - DEPRESSION [None]
